FAERS Safety Report 4817592-0 (Version None)
Quarter: 2005Q4

REPORT INFORMATION
  Report Type: 
  Country: None (occurrence: None)
  Receive Date: 20051031
  Receipt Date: 20051017
  Transmission Date: 20060501
  Serious: Yes (Death, Hospitalization)
  Sender: FDA-Public Use
  Company Number: CLOF-10120

PATIENT
  Age: 21 Year
  Sex: Male

DRUGS (14)
  1. CLOFARABINE [Suspect]
     Indication: ACUTE LYMPHOCYTIC LEUKAEMIA
     Dosage: 86 MG QD  IV
     Route: 042
     Dates: start: 20050914, end: 20051014
  2. AZITHROMYCIN [Concomitant]
  3. ACYCLOVIR [Concomitant]
  4. ITRACONZOLE [Concomitant]
  5. SLOW-K [Concomitant]
  6. SANDO-PHOSPHATE [Concomitant]
  7. ONDASETRON [Concomitant]
  8. THYROXINE [Concomitant]
  9. DEXAMETHASONE [Concomitant]
  10. AMIKACIN [Concomitant]
  11. MEROPENEM [Concomitant]
  12. TEICOPLANIN [Concomitant]
  13. CODEINE PHOSPHATE [Concomitant]
  14. MORPHINE [Concomitant]

REACTIONS (8)
  - BLOOD PRESSURE IMMEASURABLE [None]
  - CATHETER RELATED INFECTION [None]
  - DRUG EFFECT DECREASED [None]
  - PULSE ABSENT [None]
  - RESPIRATORY DISTRESS [None]
  - SEPTIC SHOCK [None]
  - STAPHYLOCOCCAL INFECTION [None]
  - WHITE BLOOD CELL COUNT DECREASED [None]
